FAERS Safety Report 9606430 (Version 1)
Quarter: 2013Q4

REPORT INFORMATION
  Report Type: Spontaneous
  Country: US (occurrence: US)
  Receive Date: 20131008
  Receipt Date: 20131008
  Transmission Date: 20140711
  Serious: No
  Sender: FDA-Public Use
  Company Number: US-AMGEN-USASP2013050768

PATIENT
  Sex: Female

DRUGS (5)
  1. PROLIA [Suspect]
     Indication: OSTEOPOROSIS POSTMENOPAUSAL
     Dosage: UNK
     Dates: start: 20130716
  2. AVAPRO [Concomitant]
  3. COREG [Concomitant]
  4. ACIPHEX [Concomitant]
  5. PRAVASTATIN [Concomitant]

REACTIONS (1)
  - Paraesthesia [Unknown]
